FAERS Safety Report 19060552 (Version 1)
Quarter: 2021Q1

REPORT INFORMATION
  Report Type: Spontaneous
  Country: NL (occurrence: NL)
  Receive Date: 20210326
  Receipt Date: 20210326
  Transmission Date: 20210420
  Serious: Yes (Other)
  Sender: FDA-Public Use
  Company Number: NL-SUN PHARMACEUTICAL INDUSTRIES LTD-2021RR-288058

PATIENT
  Age: 62 Year
  Sex: Female

DRUGS (1)
  1. SERTRALINE [Suspect]
     Active Substance: SERTRALINE HYDROCHLORIDE
     Indication: STRESS
     Dosage: ()
     Route: 065
     Dates: start: 2005, end: 2019

REACTIONS (3)
  - Chest discomfort [Recovering/Resolving]
  - Hallucination, auditory [Recovering/Resolving]
  - Paraesthesia [Recovering/Resolving]
